FAERS Safety Report 6363793-2 (Version None)
Quarter: 2009Q3

REPORT INFORMATION
  Report Type: 
  Country: None (occurrence: None)
  Receive Date: 20090919
  Receipt Date: 20090707
  Transmission Date: 20100115
  Serious: No
  Sender: FDA-Public Use
  Company Number: US-ABBOTT-09P-163-0584026-00

PATIENT
  Sex: Female
  Weight: 133.93 kg

DRUGS (2)
  1. HUMIRA [Suspect]
     Indication: RHEUMATOID ARTHRITIS
     Dates: start: 20090621
  2. DIAZIDE [Concomitant]
     Indication: DRUG USE FOR UNKNOWN INDICATION
     Dosage: 37.5/25MG DAILY
     Dates: start: 20090511

REACTIONS (6)
  - CHEST DISCOMFORT [None]
  - DIZZINESS [None]
  - HYPERTENSION [None]
  - OEDEMA [None]
  - TACHYCARDIA [None]
  - WEIGHT INCREASED [None]
